FAERS Safety Report 19799776 (Version 2)
Quarter: 2021Q3

REPORT INFORMATION
  Report Type: Spontaneous
  Country: US (occurrence: US)
  Receive Date: 20210907
  Receipt Date: 20210929
  Transmission Date: 20211014
  Serious: No
  Sender: FDA-Public Use
  Company Number: US-MERZ PHARMACEUTICALS GMBH-21-03070

PATIENT
  Age: 47 Year
  Sex: Female

DRUGS (4)
  1. XEOMIN [Suspect]
     Active Substance: INCOBOTULINUMTOXINA
     Indication: SKIN WRINKLING
  2. BOTOX [Concomitant]
     Active Substance: ONABOTULINUMTOXINA
  3. XEOMIN [Suspect]
     Active Substance: INCOBOTULINUMTOXINA
     Indication: SKIN WRINKLING
  4. XEOMIN [Suspect]
     Active Substance: INCOBOTULINUMTOXINA
     Indication: SKIN COSMETIC PROCEDURE

REACTIONS (4)
  - Diarrhoea [Recovering/Resolving]
  - Off label use [Unknown]
  - Abdominal pain upper [Recovering/Resolving]
  - Injection site hypersensitivity [Recovering/Resolving]
